FAERS Safety Report 8803689 (Version 1)
Quarter: 2012Q4

REPORT INFORMATION
  Report Type: 
  Country: SE (occurrence: SE)
  Receive Date: 20120924
  Receipt Date: 20120924
  Transmission Date: 20130627
  Serious: Yes (Hospitalization)
  Sender: FDA-Public Use
  Company Number: SE-PFIZER INC-2012230982

PATIENT
  Sex: Female
  Weight: 97.6 kg

DRUGS (30)
  1. GENOTROPIN [Suspect]
     Indication: GROWTH HORMONE DEFICIENCY
     Dosage: 0.4 mg/day, 7 injections/week
     Route: 058
     Dates: start: 20010503
  2. REMERON [Concomitant]
     Indication: SLEEP DISORDER
     Dosage: UNK
  3. VI-SIBLIN [Concomitant]
     Indication: CONSTIPATION
     Dosage: UNK
  4. CLARITYN [Concomitant]
     Indication: HYPERSENSITIVITY
     Dosage: UNK
  5. ENOMDAN [Concomitant]
     Indication: HYPOVITAMINOSIS
     Dosage: UNK
  6. IMIGRAN [Concomitant]
     Indication: HEADACHE
     Dosage: UNK
  7. EVOREL [Concomitant]
     Indication: LUTEINISING HORMONE DEFICIENCY
     Dosage: UNK
  8. EVOREL [Concomitant]
     Indication: FOLLICLE-STIMULATING HORMONE DEFICIENCY
  9. EVOREL [Concomitant]
     Indication: HYPOGONADISM FEMALE
  10. MINIFOM [Concomitant]
     Indication: GASTRIC DISORDER
     Dosage: UNK
     Dates: start: 19900101
  11. CIPRAMIL [Concomitant]
     Indication: DEPRESSION
     Dosage: UNK
     Dates: start: 19970101
  12. BETOLVEX [Concomitant]
     Indication: VITAMIN B COMPLEX DEFICIENCY
     Dosage: UNK
     Dates: start: 19970101
  13. LEVAXIN [Concomitant]
     Indication: HYPOTHYROIDISM
     Dosage: UNK
     Dates: start: 20010531
  14. XENICAL [Concomitant]
     Indication: OBESITY
     Dosage: UNK
     Dates: start: 19991216
  15. MORFIN [Concomitant]
     Indication: PAIN
     Dosage: UNK
     Dates: start: 20020110
  16. SYMBICORT [Concomitant]
     Indication: ASTHMA
     Dosage: UNK
     Dates: start: 20050301
  17. FURIX [Concomitant]
     Indication: OEDEMA
     Dosage: UNK
     Dates: start: 20060515
  18. SPIRONOLAKTON [Concomitant]
     Indication: DIURETIC THERAPY
     Dosage: UNK
     Dates: start: 20060515
  19. STESOLID [Concomitant]
     Indication: DEPRESSION
     Dosage: UNK
     Dates: start: 20020110
  20. PROPAVAN [Concomitant]
     Indication: SLEEP DISORDER
     Dosage: UNK
     Dates: start: 20020110
  21. DOLCONTIN [Concomitant]
     Indication: NEURALGIA
     Dosage: UNK
     Dates: start: 20020110
  22. DOLCONTIN [Concomitant]
     Indication: NEURITIS
  23. IMOVANE [Concomitant]
     Indication: SLEEP DISORDER
     Dosage: UNK
     Dates: start: 20020110
  24. ALVEDON [Concomitant]
     Indication: HEADACHE
     Dosage: UNK
     Dates: start: 20020110
  25. ETALPHA [Concomitant]
     Indication: VITAMIN D DEFICIENCY
     Dosage: UNK
     Dates: start: 20020204
  26. ZYLORIC ^FAES^ [Concomitant]
     Indication: AMINO ACID METABOLISM DISORDER
     Dosage: UNK
     Dates: start: 20020628
  27. HYDROCORTISONE [Concomitant]
     Indication: BLOOD CORTICOTROPHIN DECREASED
     Dosage: UNK
     Dates: start: 20060521
  28. ENALAPRIL [Concomitant]
     Indication: ESSENTIAL HYPERTENSION
     Dosage: UNK
     Dates: start: 20030301
  29. LANZO [Concomitant]
     Indication: GASTRITIS
     Dosage: UNK
     Dates: start: 20031111
  30. NORVASC [Concomitant]
     Indication: HYPERTONIA
     Dosage: UNK
     Dates: start: 20030906

REACTIONS (1)
  - Pneumonia [Unknown]
